FAERS Safety Report 15183658 (Version 2)
Quarter: 2018Q3

REPORT INFORMATION
  Report Type: Spontaneous
  Country: US (occurrence: US)
  Receive Date: 20180723
  Receipt Date: 20180726
  Transmission Date: 20181010
  Serious: Yes (Hospitalization)
  Sender: FDA-Public Use
  Company Number: US-PFIZER INC-2018294882

PATIENT
  Age: 16 Month
  Sex: Male
  Weight: 10 kg

DRUGS (4)
  1. AMINOPHYLLINE. [Suspect]
     Active Substance: AMINOPHYLLINE
     Indication: DYSPNOEA
     Dosage: 25 MG/KG, DAILY
  2. AMINOPHYLLINE. [Suspect]
     Active Substance: AMINOPHYLLINE
     Dosage: 0.25 G, UNK (SUPPOSITORIES)
  3. AMINOPHYLLINE. [Suspect]
     Active Substance: AMINOPHYLLINE
     Dosage: 0.25 G, UNK (SUPPOSITORIES)
  4. AMINOPHYLLINE. [Suspect]
     Active Substance: AMINOPHYLLINE
     Dosage: 0.25 G, UNK (SUPPOSITORIES)

REACTIONS (4)
  - Respiratory rate increased [Recovering/Resolving]
  - Vomiting [Recovering/Resolving]
  - Toxicity to various agents [Recovering/Resolving]
  - Irritability [Recovering/Resolving]
